FAERS Safety Report 9490728 (Version 4)
Quarter: 2013Q3

REPORT INFORMATION
  Report Type: Spontaneous
  Country: US (occurrence: US)
  Receive Date: 20130830
  Receipt Date: 20130918
  Transmission Date: 20140515
  Serious: Yes (Hospitalization, Disabling, Other)
  Sender: FDA-Public Use
  Company Number: US-RANBAXY-2013US-71478

PATIENT
  Age: 57 Year
  Sex: Female
  Weight: 51.7 kg

DRUGS (7)
  1. CLINDAMYCIN [Suspect]
     Indication: PROPHYLAXIS
     Dosage: UNK UNK, TID
     Route: 065
     Dates: start: 2012, end: 2012
  2. VANCOMYCIN [Suspect]
     Indication: CLOSTRIDIUM DIFFICILE INFECTION
     Dosage: UNK
     Route: 065
     Dates: start: 2012
  3. CLINDAMYCIN [Suspect]
     Indication: PROPHYLAXIS
     Dosage: UNK UNK, TID
     Route: 065
     Dates: start: 2012, end: 2012
  4. CLINDAMYCIN [Suspect]
     Indication: PROPHYLAXIS
     Dosage: UNK UNK, TID
     Route: 065
     Dates: start: 2012, end: 2012
  5. DIFICID [Suspect]
     Indication: CLOSTRIDIUM DIFFICILE INFECTION
     Route: 065
  6. FLAGYL [Suspect]
     Indication: CLOSTRIDIUM DIFFICILE INFECTION
     Dosage: 500 MG, BID
     Route: 065
  7. CLONAZEPAM [Concomitant]
     Indication: ANXIETY
     Dosage: UNK
     Route: 065

REACTIONS (24)
  - Diarrhoea [Not Recovered/Not Resolved]
  - Pyrexia [Unknown]
  - Vomiting [Unknown]
  - Weight decreased [Unknown]
  - Hepatic enzyme increased [Unknown]
  - Blepharitis [Unknown]
  - Rosacea [Unknown]
  - Neuropathy peripheral [Unknown]
  - Oedema peripheral [Unknown]
  - Nausea [Unknown]
  - Feeling abnormal [Unknown]
  - Aphagia [Unknown]
  - Hepatic function abnormal [Unknown]
  - Disability [Unknown]
  - Clostridium difficile infection [Recovered/Resolved]
  - Erythema [Unknown]
  - Suicidal ideation [Unknown]
  - Depression [Unknown]
  - Nightmare [Unknown]
  - Local swelling [Unknown]
  - Drug ineffective [Unknown]
  - Malaise [Unknown]
  - Malaise [Unknown]
  - Adverse drug reaction [Unknown]
